FAERS Safety Report 9277249 (Version 2)
Quarter: 2013Q2

REPORT INFORMATION
  Report Type: Report from Study
  Country: NL (occurrence: NL)
  Receive Date: 20130508
  Receipt Date: 20130509
  Transmission Date: 20140414
  Serious: Yes (Other)
  Sender: FDA-Public Use
  Company Number: NL-ROCHE-1219902

PATIENT
  Age: 83 Year
  Sex: Female

DRUGS (1)
  1. VEMURAFENIB [Suspect]
     Indication: MALIGNANT MELANOMA
     Route: 048
     Dates: start: 20130321

REACTIONS (2)
  - Squamous cell carcinoma [Not Recovered/Not Resolved]
  - Lip squamous cell carcinoma [Not Recovered/Not Resolved]
